FAERS Safety Report 25931291 (Version 1)
Quarter: 2025Q4

REPORT INFORMATION
  Report Type: Spontaneous
  Country: US (occurrence: US)
  Receive Date: 20251016
  Receipt Date: 20251016
  Transmission Date: 20260119
  Serious: No
  Sender: ABBVIE
  Company Number: US-ABBVIE-6503972

PATIENT
  Sex: Male

DRUGS (1)
  1. KYBELLA [Suspect]
     Active Substance: DEOXYCHOLIC ACID
     Indication: Fat tissue increased
     Dosage: TIME INTERVAL: AS NECESSARY: 2ML VIALS
     Route: 058

REACTIONS (1)
  - Eye infection [Unknown]
